FAERS Safety Report 7588811-5 (Version None)
Quarter: 2011Q2

REPORT INFORMATION
  Report Type: 
  Country: None (occurrence: None)
  Receive Date: 20110627
  Receipt Date: 20110622
  Transmission Date: 20111010
  Serious: Yes (Hospitalization)
  Sender: FDA-Public Use
  Company Number: 2011SP015995

PATIENT
  Age: 65 Year
  Sex: Female

DRUGS (9)
  1. OXAZEPAM [Suspect]
     Indication: PRODUCT USED FOR UNKNOWN INDICATION
     Dosage: 50 MG; TID; PO
     Route: 048
     Dates: end: 20101104
  2. SOLIAN (AMISULPRIDE) [Suspect]
     Indication: PRODUCT USED FOR UNKNOWN INDICATION
     Dosage: 200 MG; QD; PO
     Route: 048
     Dates: end: 20101104
  3. LEVOTHYROXINE SODIUM [Concomitant]
  4. MIRTAZAPINE [Suspect]
     Indication: PRODUCT USED FOR UNKNOWN INDICATION
     Dosage: 15 MG; QD; PO
     Route: 048
     Dates: start: 20100601, end: 20101104
  5. LEPTICUR (TROPATEPINE HYDROCHLORIDE) [Suspect]
     Indication: PRODUCT USED FOR UNKNOWN INDICATION
     Dosage: 10 MG; QD; PO
     Route: 048
     Dates: end: 20101104
  6. LITHIUM CARBONATE [Suspect]
     Indication: PRODUCT USED FOR UNKNOWN INDICATION
     Dosage: 250 MG; TID; PO
     Route: 048
     Dates: start: 20100601, end: 20101104
  7. KETOPROFEN [Suspect]
     Indication: PAIN IN EXTREMITY
     Dosage: 5 DF; QD; IM
     Route: 030
     Dates: start: 20101001, end: 20101001
  8. LYRICA [Suspect]
     Indication: PRODUCT USED FOR UNKNOWN INDICATION
     Dosage: 150 MG; QD; PO
     Route: 048
     Dates: end: 20101104
  9. GLUCOPHAGE [Suspect]
     Dosage: 1000 MG; TID; PO
     Route: 048
     Dates: end: 20101104

REACTIONS (19)
  - NITRITURIA [None]
  - IRON DEFICIENCY [None]
  - DIARRHOEA HAEMORRHAGIC [None]
  - DEHYDRATION [None]
  - METABOLIC ACIDOSIS [None]
  - GENERAL PHYSICAL HEALTH DETERIORATION [None]
  - LEUKOCYTOSIS [None]
  - PROTEINURIA [None]
  - LEUKOCYTURIA [None]
  - PYREXIA [None]
  - HYPOTENSION [None]
  - RENAL FAILURE ACUTE [None]
  - INFLAMMATION [None]
  - NORMOCHROMIC NORMOCYTIC ANAEMIA [None]
  - OEDEMA [None]
  - HAEMATURIA [None]
  - NEUTROPHILIA [None]
  - HYPERKALAEMIA [None]
  - DIALYSIS [None]
